FAERS Safety Report 5293146-X (Version None)
Quarter: 2007Q2

REPORT INFORMATION
  Report Type: 
  Country: None (occurrence: None)
  Receive Date: 20070411
  Receipt Date: 20070403
  Transmission Date: 20071010
  Serious: Yes (Hospitalization, Other)
  Sender: FDA-Public Use
  Company Number: US-BAYER-200710926BWH

PATIENT
  Age: 62 Year
  Sex: Female
  Weight: 53 kg

DRUGS (2)
  1. SORAFENIB [Suspect]
     Indication: NON-SMALL CELL LUNG CANCER
     Dosage: TOTAL DAILY DOSE: 800 MG  UNIT DOSE: 200 MG
     Route: 048
     Dates: start: 20061229, end: 20070101
  2. SORAFENIB [Suspect]
     Dosage: TOTAL DAILY DOSE: 400 MG  UNIT DOSE: 200 MG
     Route: 048
     Dates: start: 20070101, end: 20070306

REACTIONS (9)
  - ANOREXIA [None]
  - DEHYDRATION [None]
  - FATIGUE [None]
  - HYPOCALCAEMIA [None]
  - HYPOPHOSPHATAEMIA [None]
  - LYMPHOPENIA [None]
  - NAUSEA [None]
  - PANCREATITIS [None]
  - VOMITING [None]
